FAERS Safety Report 15330450 (Version 3)
Quarter: 2020Q4

REPORT INFORMATION
  Report Type: Spontaneous
  Country: US (occurrence: US)
  Receive Date: 20180829
  Receipt Date: 20201126
  Transmission Date: 20210113
  Serious: Yes (Death, Hospitalization, Other)
  Sender: FDA-Public Use
  Company Number: US-PFIZER INC-2018344376

PATIENT
  Age: 63 Year
  Sex: Female
  Weight: 61.23 kg

DRUGS (2)
  1. REVATIO [Suspect]
     Active Substance: SILDENAFIL CITRATE
     Indication: PULMONARY HYPERTENSION
     Dosage: 20 MG, 3X/DAY
     Dates: start: 2009
  2. REVATIO [Suspect]
     Active Substance: SILDENAFIL CITRATE
     Indication: LUNG DISORDER
     Dosage: 20 MG, 3X/DAY
     Route: 048
     Dates: start: 2008

REACTIONS (5)
  - Fluid retention [Recovered/Resolved]
  - Death [Fatal]
  - Pericardial effusion [Recovered/Resolved]
  - Cardiac failure congestive [Unknown]
  - Breast cancer [Unknown]

NARRATIVE: CASE EVENT DATE: 2018
